FAERS Safety Report 5091460-4 (Version None)
Quarter: 2006Q3

REPORT INFORMATION
  Report Type: 
  Country: None (occurrence: None)
  Receive Date: 20060829
  Receipt Date: 20060620
  Transmission Date: 20061208
  Serious: Yes (Other)
  Sender: FDA-Public Use
  Company Number: CA-GLAXOSMITHKLINE-A0609727A

PATIENT
  Age: 57 Year
  Sex: Female

DRUGS (4)
  1. AVANDIA [Suspect]
     Indication: DRUG USE FOR UNKNOWN INDICATION
     Dosage: 8MG PER DAY
     Route: 065
  2. LIPITOR [Suspect]
     Indication: BLOOD CHOLESTEROL INCREASED
     Route: 065
  3. ALTACE [Concomitant]
  4. METFORMIN HCL [Concomitant]

REACTIONS (2)
  - MYALGIA [None]
  - POLYMYALGIA RHEUMATICA [None]
